FAERS Safety Report 6223391-8 (Version None)
Quarter: 2009Q2

REPORT INFORMATION
  Report Type: 
  Country: None (occurrence: None)
  Receive Date: 20090609
  Receipt Date: 20090603
  Transmission Date: 20091009
  Serious: Yes (Hospitalization)
  Sender: FDA-Public Use
  Company Number: 2009SP012126

PATIENT
  Age: 36 Year
  Sex: Female

DRUGS (3)
  1. DESLORATADINE [Suspect]
     Indication: DRUG USE FOR UNKNOWN INDICATION
     Dosage: 5 MG; QD; PO
     Route: 048
     Dates: start: 20090326
  2. LOVENOX [Suspect]
     Indication: PULMONARY EMBOLISM
     Dosage: 0.9 ML; BID; SC
     Route: 058
     Dates: start: 20090326, end: 20090328
  3. PREVISCAN (FLUINDIONE) [Suspect]
     Indication: DRUG USE FOR UNKNOWN INDICATION
     Dosage: 20 MG;QD;PO
     Route: 048
     Dates: start: 20090326

REACTIONS (2)
  - INJECTION SITE REACTION [None]
  - TOXIC SKIN ERUPTION [None]
